FAERS Safety Report 8219768-1 (Version None)
Quarter: 2012Q1

REPORT INFORMATION
  Report Type: 
  Country: None (occurrence: None)
  Receive Date: 20120319
  Receipt Date: 20120316
  Transmission Date: 20120608
  Serious: No
  Sender: FDA-Public Use
  Company Number: US-PFIZER INC-2012070133

PATIENT
  Sex: Female

DRUGS (9)
  1. CHANTIX [Suspect]
     Indication: SMOKING CESSATION THERAPY
     Dosage: 1 MG, 2X/DAY
     Route: 048
     Dates: start: 20120201, end: 20120101
  2. CHANTIX [Suspect]
     Dosage: UNK
     Route: 048
     Dates: start: 20120101, end: 20120314
  3. EZETIMIBE [Concomitant]
     Indication: BLOOD CHOLESTEROL INCREASED
     Dosage: 10 MG, DAILY
  4. SIMVASTATIN [Concomitant]
     Indication: BLOOD CHOLESTEROL INCREASED
     Dosage: 40 MG, DAILY
  5. OMEPRAZOLE [Concomitant]
     Indication: GASTRIC DISORDER
     Dosage: 20 MG, DAILY
  6. ENDRATE [Concomitant]
     Indication: BLOOD CHOLESTEROL INCREASED
     Dosage: 160 MG, DAILY
  7. DICLOFENAC [Concomitant]
     Indication: BACK PAIN
     Dosage: 75 MG, 2X/DAY
  8. AMBIEN [Concomitant]
     Indication: SLEEP DISORDER
     Dosage: 10 MG, DAILY
  9. VENLAFAXINE [Concomitant]
     Indication: DEPRESSION
     Dosage: 200 MG, DAILY

REACTIONS (1)
  - CONFUSIONAL STATE [None]
